FAERS Safety Report 16228807 (Version 1)
Quarter: 2019Q2

REPORT INFORMATION
  Report Type: Spontaneous
  Country: AU (occurrence: AU)
  Receive Date: 20190423
  Receipt Date: 20190423
  Transmission Date: 20190711
  Serious: Yes (Other)
  Sender: FDA-Public Use
  Company Number: AU-PFIZER INC-2019168285

PATIENT
  Age: 57 Year
  Sex: Female
  Weight: 50 kg

DRUGS (4)
  1. SPIRIVA [Concomitant]
     Active Substance: TIOTROPIUM BROMIDE MONOHYDRATE
     Dosage: UNK
  2. LYRICA [Suspect]
     Active Substance: PREGABALIN
     Indication: PAIN
     Dosage: 300 MG, ONCE EVERY 3 TO 4 DAYS (ON AND OFF)
  3. VENTOLIN [Concomitant]
     Active Substance: ALBUTEROL SULFATE
     Dosage: UNK
  4. LYRICA [Suspect]
     Active Substance: PREGABALIN
     Indication: NERVE INJURY

REACTIONS (14)
  - Anxiety [Unknown]
  - Psychomotor hyperactivity [Unknown]
  - Scratch [Unknown]
  - Dry mouth [Unknown]
  - Pruritus [Unknown]
  - Drug abuser [Unknown]
  - Weight increased [Not Recovered/Not Resolved]
  - Dysgeusia [Unknown]
  - Vomiting [Unknown]
  - Intentional product misuse [Unknown]
  - Insomnia [Not Recovered/Not Resolved]
  - Parosmia [Unknown]
  - Therapeutic product effect incomplete [Unknown]
  - Decreased appetite [Unknown]
